FAERS Safety Report 7304323-8 (Version None)
Quarter: 2011Q1

REPORT INFORMATION
  Report Type: 
  Country: None (occurrence: None)
  Receive Date: 20110221
  Receipt Date: 20110207
  Transmission Date: 20110831
  Serious: Yes (Hospitalization)
  Sender: FDA-Public Use
  Company Number: US-ELI_LILLY_AND_COMPANY-US201101002321

PATIENT
  Age: 69 Year
  Sex: Male

DRUGS (2)
  1. HUMALOG [Suspect]
     Indication: DIABETES MELLITUS
     Dates: end: 20101201
  2. LANTUS [Concomitant]

REACTIONS (3)
  - MUSCLE ATROPHY [None]
  - DRUG INTERACTION [None]
  - WEIGHT DECREASED [None]
